FAERS Safety Report 18007544 (Version 5)
Quarter: 2023Q4

REPORT INFORMATION
  Report Type: Report from Study
  Country: US (occurrence: US)
  Receive Date: 20200710
  Receipt Date: 20231012
  Transmission Date: 20240109
  Serious: No
  Sender: FDA-Public Use
  Company Number: US-SHIRE-US201946096

PATIENT
  Age: 38 Year
  Sex: Female

DRUGS (45)
  1. TEDUGLUTIDE [Suspect]
     Active Substance: TEDUGLUTIDE
     Indication: Short-bowel syndrome
     Dosage: 3.3 MILLIGRAM, QD
     Route: 042
     Dates: start: 20180327
  2. TEDUGLUTIDE [Suspect]
     Active Substance: TEDUGLUTIDE
     Indication: Short-bowel syndrome
     Dosage: 3.3 MILLIGRAM, QD
     Route: 042
     Dates: start: 20180327
  3. TEDUGLUTIDE [Suspect]
     Active Substance: TEDUGLUTIDE
     Indication: Short-bowel syndrome
     Dosage: 3.3 MILLIGRAM, QD
     Route: 042
     Dates: start: 20180327
  4. TEDUGLUTIDE [Suspect]
     Active Substance: TEDUGLUTIDE
     Indication: Short-bowel syndrome
     Dosage: 3.3 MILLIGRAM, QD
     Route: 042
     Dates: start: 20180327
  5. ZINC [Concomitant]
     Active Substance: ZINC
     Indication: Skin papilloma
     Dosage: UNK
     Route: 065
  6. FLAGYL [Concomitant]
     Active Substance: METRONIDAZOLE\METRONIDAZOLE HYDROCHLORIDE
     Indication: Infection
     Dosage: 250 MILLIGRAM, TID
     Route: 048
     Dates: start: 20210217, end: 202103
  7. FLAGYL [Concomitant]
     Active Substance: METRONIDAZOLE\METRONIDAZOLE HYDROCHLORIDE
     Dosage: 500 MILLIGRAM, BID
     Route: 048
     Dates: start: 20190718, end: 20190724
  8. AUGMENTIN [Concomitant]
     Active Substance: AMOXICILLIN\CLAVULANATE POTASSIUM
     Indication: Otitis media
     Dosage: UNK
     Route: 048
     Dates: start: 2019, end: 2019
  9. DIFLUCAN [Concomitant]
     Active Substance: FLUCONAZOLE
     Indication: Vulvovaginal candidiasis
     Dosage: 150 MILLIGRAM, QD
     Route: 048
     Dates: start: 20190730, end: 20190730
  10. ALPRAZOLAM [Concomitant]
     Active Substance: ALPRAZOLAM
     Indication: Anxiety
     Dosage: 0.5 MILLIGRAM, TID
     Route: 048
     Dates: start: 20140911
  11. BACTRIM [Concomitant]
     Active Substance: SULFAMETHOXAZOLE\TRIMETHOPRIM
     Indication: Blood urine present
     Dosage: UNK
     Route: 048
     Dates: start: 201803, end: 201803
  12. CHOLECALCIFEROL [Concomitant]
     Active Substance: CHOLECALCIFEROL
     Indication: Vitamin D deficiency
     Dosage: 200 INTERNATIONAL UNIT, QD
     Route: 048
     Dates: start: 202102
  13. OPIUM TINCTURE [Concomitant]
     Active Substance: MORPHINE
     Indication: Diarrhoea
     Dosage: 0.6 MILLILITER
     Route: 048
     Dates: start: 20190515
  14. VANCOMYCIN [Concomitant]
     Active Substance: VANCOMYCIN
     Indication: Bursitis infective
     Dosage: 125 MILLIGRAM, QID
     Route: 048
     Dates: start: 201811, end: 201811
  15. CLINDAMYCIN [Concomitant]
     Active Substance: CLINDAMYCIN
     Indication: Bursitis infective
     Dosage: 300 MILLIGRAM, TID
     Route: 048
     Dates: start: 20181021, end: 201811
  16. CLINDAMYCIN [Concomitant]
     Active Substance: CLINDAMYCIN
     Dosage: UNK
     Route: 065
     Dates: start: 20181024, end: 20181024
  17. VITAMINS [Concomitant]
     Active Substance: VITAMINS
     Indication: Hypovitaminosis
     Dosage: 1 DOSAGE FORM, QD
     Route: 048
     Dates: start: 20110308
  18. ZINC GLUCONATE [Concomitant]
     Active Substance: ZINC GLUCONATE
     Indication: Hypovitaminosis
     Dosage: 50 MILLIGRAM, QD
     Route: 048
  19. ZINC GLUCONATE [Concomitant]
     Active Substance: ZINC GLUCONATE
     Indication: Skin papilloma
  20. TRETINOIN [Concomitant]
     Active Substance: TRETINOIN
     Indication: Chloasma
     Dosage: UNK, QD
     Route: 061
     Dates: start: 201712, end: 20190227
  21. SUCRALFATE [Concomitant]
     Active Substance: SUCRALFATE
     Indication: Gastrooesophageal reflux disease
     Dosage: 10 MILLILITER, TID
     Route: 048
     Dates: start: 201804, end: 20190227
  22. ACETAMINOPHEN AND CODEINE [Concomitant]
     Active Substance: ACETAMINOPHEN\CODEINE PHOSPHATE
     Indication: Abdominal pain
     Dosage: 300 MILLIGRAM
     Route: 048
     Dates: start: 20180610
  23. ACETAMINOPHEN AND CODEINE [Concomitant]
     Active Substance: ACETAMINOPHEN\CODEINE PHOSPHATE
     Indication: Back pain
  24. UCERIS [Concomitant]
     Active Substance: BUDESONIDE
     Indication: Crohn^s disease
     Dosage: 1 UNK, QD
     Route: 050
     Dates: start: 201809
  25. ENTOCORT EC [Concomitant]
     Active Substance: BUDESONIDE
     Indication: Crohn^s disease
     Dosage: 9 MILLIGRAM, QD
     Route: 048
  26. BUSPIRONE [Concomitant]
     Active Substance: BUSPIRONE HYDROCHLORIDE
     Indication: Anxiety
     Dosage: 5 MILLIGRAM, TID
     Route: 048
  27. PHENERGAN [Concomitant]
     Active Substance: PROMETHAZINE HYDROCHLORIDE
     Indication: Nausea
     Dosage: 25 MILLIGRAM
     Route: 048
  28. PAXIL [Concomitant]
     Active Substance: PAROXETINE HYDROCHLORIDE
     Indication: Anxiety
     Dosage: 40 MILLIGRAM, QD
     Route: 048
  29. MORPHINE [Concomitant]
     Active Substance: MORPHINE
     Indication: Diarrhoea
     Dosage: 1 MILLILITER
     Route: 048
     Dates: end: 20190514
  30. MAGNESIUM [Concomitant]
     Active Substance: MAGNESIUM
     Indication: Magnesium deficiency
     Dosage: 2 INTERNATIONAL UNIT, QD
     Route: 048
  31. LOPERAMIDE [Concomitant]
     Active Substance: LOPERAMIDE
     Indication: Diarrhoea
     Dosage: 4 MILLIGRAM, QID
     Route: 048
  32. GAMMAPLEX [Concomitant]
     Active Substance: HUMAN IMMUNOGLOBULIN G
     Indication: Autoimmune lymphoproliferative syndrome
     Dosage: 5 MILLIGRAM
     Route: 042
     Dates: start: 2018
  33. HYOSCYAMINE [Concomitant]
     Active Substance: HYOSCYAMINE
     Indication: Abdominal pain
     Dosage: 0.25 MILLIGRAM
     Route: 048
  34. GUAIFENESIN [Concomitant]
     Active Substance: GUAIFENESIN
     Indication: Seasonal allergy
     Dosage: 1 DOSAGE FORM
     Route: 050
     Dates: start: 20170511
  35. FLUTICASONE [Concomitant]
     Active Substance: FLUTICASONE
     Indication: Seasonal allergy
     Dosage: UNK, QD
     Route: 065
  36. ERGOCALCIFEROL [Concomitant]
     Active Substance: ERGOCALCIFEROL
     Indication: Vitamin D deficiency
     Dosage: 50000 INTERNATIONAL UNIT, 1/WEEK
     Route: 048
     Dates: end: 20190507
  37. ESOMEPRAZOLE [Concomitant]
     Active Substance: ESOMEPRAZOLE
     Indication: Gastrooesophageal reflux disease
     Dosage: 40 MILLIGRAM, QD
     Route: 048
  38. DICYCLOMINE [Concomitant]
     Active Substance: DICYCLOMINE HYDROCHLORIDE
     Indication: Diarrhoea
     Dosage: 10 MILLIGRAM, TID
     Route: 048
  39. SULFAMETHOXAZOLE\TRIMETHOPRIM [Concomitant]
     Active Substance: SULFAMETHOXAZOLE\TRIMETHOPRIM
     Indication: Infection
     Dosage: UNK
     Route: 048
     Dates: start: 20190704, end: 20190711
  40. SULFAMETHOXAZOLE\TRIMETHOPRIM [Concomitant]
     Active Substance: SULFAMETHOXAZOLE\TRIMETHOPRIM
     Dosage: 1 DOSAGE FORM
     Route: 048
     Dates: start: 20190719, end: 20190726
  41. AZELAIC ACID [Concomitant]
     Active Substance: AZELAIC ACID
     Indication: Chloasma
     Dosage: UNK, QD
     Route: 061
     Dates: start: 20180925
  42. RINOCORT [Concomitant]
     Dosage: UNK, BID
  43. ZYRTEC [Concomitant]
     Active Substance: CETIRIZINE HYDROCHLORIDE
     Indication: Seasonal allergy
     Dosage: 10 MILLIGRAM, QD
     Route: 048
     Dates: start: 2008
  44. CYANOCOBALAMIN [Concomitant]
     Active Substance: CYANOCOBALAMIN
     Indication: Hypovitaminosis
     Dosage: 1 MILLILITER, TID
     Route: 030
  45. BENADRYL [Concomitant]
     Active Substance: DIPHENHYDRAMINE HYDROCHLORIDE
     Indication: Seasonal allergy
     Dosage: 25 MILLIGRAM
     Route: 048

REACTIONS (1)
  - Skin papilloma [Recovered/Resolved]

NARRATIVE: CASE EVENT DATE: 20181201
